FAERS Safety Report 24396757 (Version 1)
Quarter: 2024Q4

REPORT INFORMATION
  Report Type: Spontaneous
  Country: PL (occurrence: PL)
  Receive Date: 20241004
  Receipt Date: 20241004
  Transmission Date: 20250115
  Serious: Yes (Other)
  Sender: BAYER
  Company Number: None

PATIENT
  Age: 22 Year
  Sex: Female
  Weight: 77 kg

DRUGS (2)
  1. ULTRAVIST [Suspect]
     Active Substance: IOPROMIDE
     Indication: Abdominal pain
     Dosage: 80 ML, ONCE
     Route: 042
     Dates: start: 20201110, end: 20201110
  2. ULTRAVIST [Suspect]
     Active Substance: IOPROMIDE
     Indication: Pelvic pain

REACTIONS (6)
  - Hypersensitivity [Recovered/Resolved]
  - Feeling hot [Recovered/Resolved]
  - Pallor [Recovered/Resolved]
  - Blood pressure increased [Recovered/Resolved]
  - Heart rate increased [Recovered/Resolved]
  - Hyperhidrosis [Recovered/Resolved]

NARRATIVE: CASE EVENT DATE: 20201110
